FAERS Safety Report 7410028-5 (Version None)
Quarter: 2011Q2

REPORT INFORMATION
  Report Type: 
  Country: None (occurrence: None)
  Receive Date: 20110412
  Receipt Date: 20110331
  Transmission Date: 20111010
  Serious: Yes (Hospitalization)
  Sender: FDA-Public Use
  Company Number: PHHY2011ES15252

PATIENT
  Age: 40 Year
  Sex: Male

DRUGS (3)
  1. CERTICAN [Suspect]
     Indication: IMMUNOSUPPRESSION
     Dosage: 4 MG
     Route: 048
     Dates: start: 20100901
  2. DACORTIN [Concomitant]
  3. RAPAMUNE [Concomitant]

REACTIONS (3)
  - RENAL FAILURE ACUTE [None]
  - LYMPHOCELE [None]
  - URETERIC OBSTRUCTION [None]
